FAERS Safety Report 5038096-9 (Version None)
Quarter: 2006Q2

REPORT INFORMATION
  Report Type: 
  Country: None (occurrence: None)
  Receive Date: 20060602
  Receipt Date: 20060404
  Transmission Date: 20061013
  Serious: No
  Sender: FDA-Public Use
  Company Number: US200603006087

PATIENT
  Sex: Male

DRUGS (4)
  1. ALIMTA [Suspect]
  2. DECADRON [Concomitant]
  3. FOLIC ACID [Concomitant]
  4. CYANOCOBALAMIN [Concomitant]

REACTIONS (1)
  - BLOOD GLUCOSE INCREASED [None]
